FAERS Safety Report 20020114 (Version 2)
Quarter: 2021Q4

REPORT INFORMATION
  Report Type: Spontaneous
  Country: DK (occurrence: DK)
  Receive Date: 20211101
  Receipt Date: 20211222
  Transmission Date: 20220303
  Serious: Yes (Death, Life-Threatening, Other)
  Sender: FDA-Public Use
  Company Number: DK-AMGEN-DNKSP2021167158

PATIENT

DRUGS (6)
  1. NEULASTA [Suspect]
     Active Substance: PEGFILGRASTIM
     Indication: Prophylaxis
     Dosage: 6 MILLIGRAM
     Route: 065
  2. IPILIMUMAB [Concomitant]
     Active Substance: IPILIMUMAB
     Dosage: 3 MILLIGRAM/KILOGRAM
  3. NIVOLUMAB [Concomitant]
     Active Substance: NIVOLUMAB
     Dosage: 3 MILLIGRAM/KILOGRAM, Q2WK X 4
  4. CYCLOPHOSPHAMIDE [Concomitant]
     Active Substance: CYCLOPHOSPHAMIDE
     Dosage: 60 MILLIGRAM/KILOGRAM X2
  5. FLUDARABINE PHOSPHATE [Concomitant]
     Active Substance: FLUDARABINE PHOSPHATE
     Dosage: 25 MILLIGRAM PER MILLILITRE SQUARE X 5
  6. ALDESLEUKIN [Concomitant]
     Active Substance: ALDESLEUKIN
     Dosage: UNK, 2 MIE PER DAY FOR 14 DAYS
     Route: 058

REACTIONS (15)
  - Death [Fatal]
  - Thyroiditis [Unknown]
  - Hepatitis [Unknown]
  - Colitis [Unknown]
  - Adrenalitis [Unknown]
  - Squamous cell carcinoma of head and neck [Not Recovered/Not Resolved]
  - Cholangiocarcinoma [Not Recovered/Not Resolved]
  - Thyroid cancer [Unknown]
  - Colon cancer [Unknown]
  - Malignant melanoma [Unknown]
  - Pyrexia [Unknown]
  - Performance status decreased [Unknown]
  - Parotitis [Unknown]
  - Dermatitis [Unknown]
  - Myalgia [Unknown]
